FAERS Safety Report 4578356-9 (Version None)
Quarter: 2005Q1

REPORT INFORMATION
  Report Type: 
  Country: None (occurrence: None)
  Receive Date: 20050202
  Receipt Date: 20050202
  Transmission Date: 20050727
  Serious: Yes (Hospitalization)
  Sender: FDA-Public Use
  Company Number: None

PATIENT
  Age: 45 Year
  Sex: Male
  Weight: 82 kg

DRUGS (5)
  1. OXACILLIN [Suspect]
     Indication: STAPHYLOCOCCAL INFECTION
     Dosage: 2 GM IV Q 4 H
     Route: 042
     Dates: start: 20040612, end: 20040622
  2. IBUPROFEN [Suspect]
     Indication: PAIN
     Dosage: 600 MG PO Q 6 H
     Route: 048
     Dates: start: 20040612, end: 20040622
  3. METHADONE [Concomitant]
  4. OXYCONTIN [Concomitant]
  5. TRAMADOL HCL [Concomitant]

REACTIONS (2)
  - NEPHRITIS INTERSTITIAL [None]
  - RENAL FAILURE ACUTE [None]
